FAERS Safety Report 5927953-4 (Version None)
Quarter: 2008Q4

REPORT INFORMATION
  Report Type: 
  Country: None (occurrence: None)
  Receive Date: 20081021
  Receipt Date: 20081006
  Transmission Date: 20090506
  Serious: Yes (Other)
  Sender: FDA-Public Use
  Company Number: 2008S1009897

PATIENT
  Age: 77 Year

DRUGS (5)
  1. SODIUM PHOSPHATE DIBASIC/SODIUM PHOSPHATE (SODIUM PHOSPHATE DIBASIC/SO [Suspect]
     Indication: ILEUS
     Dosage: RTL
     Route: 054
  2. ASPIRIN [Concomitant]
  3. DIPYRIDAMOLE [Concomitant]
  4. FUROSEMIDE [Concomitant]
  5. GLYBURIDE [Concomitant]

REACTIONS (3)
  - CARDIAC ARREST [None]
  - HYPERPHOSPHATAEMIA [None]
  - HYPOCALCAEMIA [None]
